FAERS Safety Report 4877632-X (Version None)
Quarter: 2006Q1

REPORT INFORMATION
  Report Type: 
  Country: None (occurrence: None)
  Receive Date: 20060109
  Receipt Date: 20051227
  Transmission Date: 20060701
  Serious: Yes (Hospitalization)
  Sender: FDA-Public Use
  Company Number: 2005BI018767

PATIENT
  Age: 71 Year
  Sex: Female
  Weight: 67.586 kg

DRUGS (7)
  1. AVONEX [Suspect]
     Indication: MULTIPLE SCLEROSIS
     Dosage: 30 UG;QW;IM
     Route: 030
  2. DETROL LA [Concomitant]
  3. PROVIGIL [Concomitant]
  4. VALIUM [Concomitant]
  5. LEXAPRO [Concomitant]
  6. CALCIUM GLUCONATE [Concomitant]
  7. ASCORBIC ACID [Concomitant]

REACTIONS (3)
  - ADHESION [None]
  - DIAPHRAGMATIC HERNIA [None]
  - SMALL INTESTINAL OBSTRUCTION [None]
